FAERS Safety Report 14945053 (Version 1)
Quarter: 2018Q2

REPORT INFORMATION
  Report Type: Spontaneous
  Country: FR (occurrence: FR)
  Receive Date: 20180529
  Receipt Date: 20180529
  Transmission Date: 20180711
  Serious: Yes (Hospitalization, Congenital Anomaly)
  Sender: FDA-Public Use
  Company Number: FR-TEVA-2018-FR-898859

PATIENT
  Age: 59 Year
  Sex: Female

DRUGS (4)
  1. ALKERAN [Suspect]
     Active Substance: MELPHALAN
     Indication: NON-HODGKIN^S LYMPHOMA
     Dosage: 239.4 MILLIGRAM DAILY;
     Route: 042
     Dates: start: 20160525, end: 20160525
  2. BICNU [Suspect]
     Active Substance: CARMUSTINE
     Indication: NON-HODGKIN^S LYMPHOMA
     Dosage: 513 MILLIGRAM DAILY;
     Route: 042
     Dates: start: 20160520, end: 20160520
  3. CYTARABINE EG [Suspect]
     Active Substance: CYTARABINE
     Indication: NON-HODGKIN^S LYMPHOMA
     Dosage: 684 MILLIGRAM DAILY;
     Route: 042
     Dates: start: 20160521, end: 20160524
  4. ETOPOSIDE TEVA [Suspect]
     Active Substance: ETOPOSIDE
     Indication: NON-HODGKIN^S LYMPHOMA
     Dosage: 684 MILLIGRAM DAILY;
     Route: 042
     Dates: start: 20160521, end: 20160524

REACTIONS (4)
  - Diarrhoea [Recovered/Resolved]
  - Aplasia [Recovered/Resolved]
  - Infection [Recovered/Resolved]
  - Mucosal inflammation [Recovered/Resolved]

NARRATIVE: CASE EVENT DATE: 20160529
